FAERS Safety Report 21323248 (Version 2)
Quarter: 2023Q1

REPORT INFORMATION
  Report Type: Spontaneous
  Country: FI (occurrence: FI)
  Receive Date: 20220912
  Receipt Date: 20230320
  Transmission Date: 20230417
  Serious: Yes (Hospitalization, Other)
  Sender: FDA-Public Use
  Company Number: None

PATIENT
  Sex: Male
  Weight: 4 kg

DRUGS (1)
  1. SERTRALINE [Suspect]
     Active Substance: SERTRALINE HYDROCHLORIDE
     Indication: Product used for unknown indication
     Dosage: 150 MILLIGRAM, QD (DAILY)
     Route: 064

REACTIONS (7)
  - Neurological symptom [Recovered/Resolved]
  - Blood pH decreased [Recovered/Resolved]
  - Staphylococcal sepsis [Recovered/Resolved]
  - Infant irritability [Recovered/Resolved]
  - Maternal exposure during pregnancy [Recovered/Resolved]
  - Hypertonia neonatal [Recovered/Resolved]
  - Respiratory disorder neonatal [Recovered/Resolved]

NARRATIVE: CASE EVENT DATE: 20220713
